FAERS Safety Report 10172709 (Version 1)
Quarter: 2014Q2

REPORT INFORMATION
  Report Type: Spontaneous
  Country: US (occurrence: US)
  Receive Date: 20140515
  Receipt Date: 20140515
  Transmission Date: 20141212
  Serious: No
  Sender: FDA-Public Use
  Company Number: US-MYLANLABS-2013S1024298

PATIENT
  Age: 84 Year
  Sex: Male
  Weight: 117.94 kg

DRUGS (2)
  1. TAMSULOSIN HYDROCHLORIDE CAPSULES USP, [Suspect]
     Indication: BENIGN PROSTATIC HYPERPLASIA
     Route: 048
     Dates: start: 2012
  2. ANTIHYPERTENSIVES [Concomitant]
     Indication: BLOOD PRESSURE

REACTIONS (3)
  - Drug ineffective [Not Recovered/Not Resolved]
  - Benign prostatic hyperplasia [Not Recovered/Not Resolved]
  - Polyuria [Not Recovered/Not Resolved]
